FAERS Safety Report 7659089-9 (Version None)
Quarter: 2011Q3

REPORT INFORMATION
  Report Type: 
  Country: None (occurrence: None)
  Receive Date: 20110805
  Receipt Date: 20110801
  Transmission Date: 20111222
  Serious: Yes (Death, Life-Threatening, Hospitalization, Other)
  Sender: FDA-Public Use
  Company Number: FR-ELI_LILLY_AND_COMPANY-FR201108000093

PATIENT
  Sex: Male

DRUGS (1)
  1. ALIMTA [Suspect]
     Indication: LUNG NEOPLASM MALIGNANT
     Dosage: 1.3 G, UNKNOWN
     Route: 042
     Dates: start: 20080411

REACTIONS (7)
  - GENERAL PHYSICAL HEALTH DETERIORATION [None]
  - GENERALISED OEDEMA [None]
  - BONE MARROW FAILURE [None]
  - DERMATITIS EXFOLIATIVE [None]
  - PYREXIA [None]
  - BLOOD CREATININE INCREASED [None]
  - TRANSAMINASES INCREASED [None]
